FAERS Safety Report 6714503-8 (Version None)
Quarter: 2010Q2

REPORT INFORMATION
  Report Type: 
  Country: None (occurrence: None)
  Receive Date: 20100506
  Receipt Date: 20100427
  Transmission Date: 20101027
  Serious: Yes (Other)
  Sender: FDA-Public Use
  Company Number: US-WATSON-2010-05778

PATIENT
  Age: 62 Year
  Sex: Female

DRUGS (5)
  1. TAMOXIFEN CITRATE [Suspect]
     Indication: BREAST CANCER
     Dosage: UNK
  2. ANASTROZOLE [Suspect]
     Indication: BREAST CANCER
     Dosage: UNK
  3. RADIOTHERAPY [Suspect]
     Indication: BREAST CANCER
     Dosage: UNK
  4. CISPLATIN [Suspect]
     Indication: LUNG NEOPLASM MALIGNANT
     Dosage: UNK
  5. GEMCITABINE HCL [Suspect]
     Indication: LUNG NEOPLASM MALIGNANT
     Dosage: UNK

REACTIONS (2)
  - CYTOGENETIC ABNORMALITY [None]
  - MYELODYSPLASTIC SYNDROME [None]
